FAERS Safety Report 20853657 (Version 2)
Quarter: 2022Q2

REPORT INFORMATION
  Report Type: Spontaneous
  Country: JP (occurrence: JP)
  Receive Date: 20220520
  Receipt Date: 20220524
  Transmission Date: 20220721
  Serious: Yes (Hospitalization)
  Sender: FDA-Public Use
  Company Number: JP-MYLANLABS-2022M1037037

PATIENT
  Age: 71 Year
  Sex: Male
  Weight: 53.6 kg

DRUGS (11)
  1. VALSARTAN [Suspect]
     Active Substance: VALSARTAN
     Indication: Hypertension
     Route: 065
  2. IRINOTECAN [Suspect]
     Active Substance: IRINOTECAN
     Indication: Small cell lung cancer extensive stage
     Dosage: 60 MILLIGRAM/SQ. METER, CYCLE, IRINOTECAN 60 MG/M2 FOR 3 CONSECUTIVE WEEKS FOLLOWED BY 1-WEEK REST
     Route: 065
     Dates: start: 20200902
  3. CISPLATIN [Suspect]
     Active Substance: CISPLATIN
     Indication: Small cell lung cancer extensive stage
     Dosage: 60 MILLIGRAM/SQ. METER, CYCLE, CISPLATIN 60 MG/M2 ON DAY 1
     Route: 065
     Dates: start: 20200902
  4. AMLODIPINE [Suspect]
     Active Substance: AMLODIPINE BESYLATE
     Indication: Hypertension
     Route: 065
  5. DEXAMETHASONE [Suspect]
     Active Substance: DEXAMETHASONE
     Indication: Prophylaxis of nausea and vomiting
     Dosage: 9.5 MILLIGRAM, QD
     Route: 065
     Dates: start: 20200902
  6. DEXAMETHASONE [Suspect]
     Active Substance: DEXAMETHASONE
     Dosage: 5.7 MILLIGRAM, QD
     Route: 065
     Dates: start: 202009
  7. PALONOSETRON [Suspect]
     Active Substance: PALONOSETRON
     Indication: Prophylaxis of nausea and vomiting
     Route: 065
     Dates: start: 20200902
  8. APREPITANT [Suspect]
     Active Substance: APREPITANT
     Indication: Prophylaxis of nausea and vomiting
     Dosage: 125 MILLIGRAM, QD, ON DAY 2
     Route: 065
     Dates: start: 202009
  9. APREPITANT [Suspect]
     Active Substance: APREPITANT
     Dosage: 80 MILLIGRAM, QD, ON DAY 3 - 4
     Route: 065
     Dates: start: 202009
  10. FEBUXOSTAT [Concomitant]
     Active Substance: FEBUXOSTAT
     Indication: Product used for unknown indication
     Route: 065
  11. PEGFILGRASTIM [Concomitant]
     Active Substance: PEGFILGRASTIM
     Indication: Prophylaxis
     Route: 065
     Dates: start: 202009

REACTIONS (3)
  - Headache [Recovering/Resolving]
  - Constipation [Recovering/Resolving]
  - Hypotension [Recovering/Resolving]

NARRATIVE: CASE EVENT DATE: 20200901
